FAERS Safety Report 4359352-3 (Version None)
Quarter: 2004Q2

REPORT INFORMATION
  Report Type: 
  Country: None (occurrence: None)
  Receive Date: 20040518
  Receipt Date: 20040329
  Transmission Date: 20050107
  Serious: Yes (Other)
  Sender: FDA-Public Use
  Company Number: 200412385US

PATIENT
  Sex: Female
  Weight: 75 kg

DRUGS (10)
  1. ALLEGRA [Suspect]
     Indication: SINUS CONGESTION
     Route: 048
     Dates: start: 20021015, end: 20040221
  2. ALLEGRA [Suspect]
     Indication: SNEEZING
     Route: 048
     Dates: start: 20021015, end: 20040221
  3. TYLENOL [Concomitant]
     Indication: ARTHRALGIA
  4. TYLENOL [Concomitant]
  5. DEPAKOTE [Concomitant]
     Indication: CONVULSION
     Route: 048
  6. MECLIZINE [Concomitant]
     Dosage: DOSE: 12.5 (1-2 TABLETS)
     Route: 048
  7. OXYBUTYNIN [Concomitant]
     Indication: CYSTITIS
     Route: 048
  8. FEMHRT [Concomitant]
     Dosage: DOSE: 1/5 TABLET
     Route: 048
  9. SSRI [Concomitant]
     Indication: DEPRESSION
     Dosage: DOSE: 1/2 TABLET
     Route: 048
  10. ZOLOFT [Concomitant]
     Indication: DEPRESSION
     Route: 048

REACTIONS (6)
  - ASTHENIA [None]
  - DIZZINESS [None]
  - FALL [None]
  - FATIGUE [None]
  - HAND FRACTURE [None]
  - HEAD INJURY [None]
